APPROVED DRUG PRODUCT: TRIPLE SULFA
Active Ingredient: TRIPLE SULFA (SULFABENZAMIDE;SULFACETAMIDE;SULFATHIAZOLE)
Strength: 184MG;143.75MG;172.5MG
Dosage Form/Route: TABLET;VAGINAL
Application: A088463 | Product #001
Applicant: E FOUGERA DIV ALTANA INC
Approved: Jan 3, 1985 | RLD: No | RS: No | Type: DISCN